FAERS Safety Report 9027032 (Version 1)
Quarter: 2013Q1

REPORT INFORMATION
  Report Type: Spontaneous
  Country: US (occurrence: US)
  Receive Date: 20130123
  Receipt Date: 20130123
  Transmission Date: 20140127
  Serious: No
  Sender: FDA-Public Use
  Company Number: US-009507513-1301USA009212

PATIENT
  Age: 51 Year
  Sex: Female

DRUGS (3)
  1. NASONEX [Suspect]
     Indication: SINUSITIS
     Dosage: UNK
     Route: 045
     Dates: start: 20120116
  2. XANAX [Concomitant]
  3. LORTAB [Concomitant]

REACTIONS (4)
  - Epistaxis [Not Recovered/Not Resolved]
  - Cough [Not Recovered/Not Resolved]
  - Oropharyngeal pain [Not Recovered/Not Resolved]
  - Off label use [Unknown]
